FAERS Safety Report 11505848 (Version 1)
Quarter: 2015Q3

REPORT INFORMATION
  Report Type: Spontaneous
  Country: US (occurrence: US)
  Receive Date: 20150915
  Receipt Date: 20150915
  Transmission Date: 20151125
  Serious: No
  Sender: FDA-Public Use
  Company Number: US-ROCHE-779471

PATIENT
  Age: 43 Year
  Sex: Male

DRUGS (2)
  1. RIBASPHERE RIBAPAK [Suspect]
     Active Substance: RIBAVIRIN
     Indication: HEPATITIS C
     Dosage: TAKEN N DIVIDED DOSES
     Route: 048
  2. PEGASYS [Suspect]
     Active Substance: PEGINTERFERON ALFA-2A
     Indication: HEPATITIS C
     Dosage: FORM: PRE-FILLED SYRINGE
     Route: 058

REACTIONS (7)
  - Dry eye [Unknown]
  - Muscle spasms [Unknown]
  - Insomnia [Unknown]
  - Irritability [Unknown]
  - Influenza like illness [Recovered/Resolved]
  - Photosensitivity reaction [Unknown]
  - Headache [Unknown]

NARRATIVE: CASE EVENT DATE: 20110325
